FAERS Safety Report 7227962-1 (Version None)
Quarter: 2011Q1

REPORT INFORMATION
  Report Type: 
  Country: None (occurrence: None)
  Receive Date: 20110114
  Receipt Date: 20110110
  Transmission Date: 20110831
  Serious: Yes (Hospitalization)
  Sender: FDA-Public Use
  Company Number: US-PFIZER INC-2011006311

PATIENT
  Sex: Male
  Weight: 163.27 kg

DRUGS (1)
  1. VIAGRA [Suspect]
     Indication: ERECTILE DYSFUNCTION
     Dosage: 50 MG, AS NEEDED
     Route: 048
     Dates: start: 20081220

REACTIONS (3)
  - HYPOTENSION [None]
  - MEMORY IMPAIRMENT [None]
  - DYSPNOEA [None]
